FAERS Safety Report 17681327 (Version 1)
Quarter: 2020Q2

REPORT INFORMATION
  Report Type: Spontaneous
  Country: US (occurrence: US)
  Receive Date: 20200417
  Receipt Date: 20200417
  Transmission Date: 20200714
  Serious: Yes (Other)
  Sender: FDA-Public Use
  Company Number: US-BAUSCH-BL-2020-010842

PATIENT
  Age: 68 Year
  Sex: Female
  Weight: 72.64 kg

DRUGS (5)
  1. LOSARTAN. [Concomitant]
     Active Substance: LOSARTAN
     Indication: PRODUCT USED FOR UNKNOWN INDICATION
     Route: 048
  2. PREDNISOLONE ACETATE. [Concomitant]
     Active Substance: PREDNISOLONE ACETATE
     Indication: POSTOPERATIVE CARE
     Dosage: ONLY IN THE RIGHT EYE
     Route: 047
  3. MURO 128 [Suspect]
     Active Substance: SODIUM CHLORIDE
     Dosage: INTO THE LEFT EYE
     Route: 047
     Dates: start: 20200320, end: 20200405
  4. MURO 128 [Suspect]
     Active Substance: SODIUM CHLORIDE
     Indication: CORNEAL DYSTROPHY
     Dosage: IN THE PAST, IN THE RIGHT EYE
     Route: 047
  5. ATENOLOL. [Concomitant]
     Active Substance: ATENOLOL
     Indication: PRODUCT USED FOR UNKNOWN INDICATION
     Route: 048

REACTIONS (3)
  - Eye irritation [Recovered/Resolved]
  - Product physical consistency issue [Unknown]
  - Keratoplasty [Unknown]

NARRATIVE: CASE EVENT DATE: 202003
